FAERS Safety Report 5776458-2 (Version None)
Quarter: 2008Q2

REPORT INFORMATION
  Report Type: 
  Country: None (occurrence: None)
  Receive Date: 20080617
  Receipt Date: 20080617
  Transmission Date: 20081010
  Serious: Yes (Life-Threatening, Hospitalization)
  Sender: FDA-Public Use
  Company Number: None

PATIENT
  Sex: Female
  Weight: 62 kg

DRUGS (7)
  1. DIGITEK  250MCG     BERTEK PHARMACEUTICALS [Suspect]
     Indication: ATRIAL FIBRILLATION
     Dosage: 250MCG ONCE DAILY  PO
     Route: 048
     Dates: start: 20080416, end: 20080616
  2. LISINOPRIL [Concomitant]
  3. AMLODIPINE [Concomitant]
  4. METOPROLOL [Concomitant]
  5. HYDROCHLOROTHIAZIDE [Concomitant]
  6. TRAMADOL HCL [Concomitant]
  7. CYCLOBENZAPRINE HCL [Concomitant]

REACTIONS (4)
  - CARDIOACTIVE DRUG LEVEL INCREASED [None]
  - NODAL ARRHYTHMIA [None]
  - PHARMACEUTICAL PRODUCT COMPLAINT [None]
  - TREATMENT NONCOMPLIANCE [None]
